FAERS Safety Report 10141664 (Version 1)
Quarter: 2014Q2

REPORT INFORMATION
  Report Type: Spontaneous
  Country: US (occurrence: US)
  Receive Date: 20140429
  Receipt Date: 20140429
  Transmission Date: 20141212
  Serious: No
  Sender: FDA-Public Use
  Company Number: US-PFIZER INC-2014116434

PATIENT
  Age: 67 Year
  Sex: Female
  Weight: 88.44 kg

DRUGS (8)
  1. TOVIAZ [Suspect]
     Indication: HYPERTONIC BLADDER
     Dosage: 8 MG, 1X/DAY
     Route: 048
     Dates: start: 2012, end: 2012
  2. TOVIAZ [Suspect]
     Dosage: 4 MG, 1X/DAY
     Route: 048
     Dates: start: 2012, end: 2012
  3. TOVIAZ [Suspect]
     Dosage: 4 MG, 1X/DAY
     Route: 048
  4. OXYBUTYNIN [Suspect]
     Indication: HYPERTONIC BLADDER
     Dosage: UNK
     Dates: start: 2012, end: 2012
  5. PRAVASTATIN [Concomitant]
     Dosage: UNK
  6. FAMOTIDINE [Concomitant]
  7. PANTOPRAZOLE [Concomitant]
  8. PREMARIN [Concomitant]
     Dosage: UNK, WEEKLY

REACTIONS (5)
  - Vitamin D decreased [Unknown]
  - Micturition urgency [Unknown]
  - Pollakiuria [Unknown]
  - Drug ineffective [Unknown]
  - Drug tolerance [Unknown]
